FAERS Safety Report 7423283-2 (Version None)
Quarter: 2011Q2

REPORT INFORMATION
  Report Type: 
  Country: None (occurrence: None)
  Receive Date: 20110419
  Receipt Date: 20101207
  Transmission Date: 20111010
  Serious: Yes (Other)
  Sender: FDA-Public Use
  Company Number: US-BAYER-201021590NA

PATIENT
  Age: 19 Year
  Sex: Female
  Weight: 113 kg

DRUGS (8)
  1. YASMIN [Suspect]
     Indication: PREMENSTRUAL SYNDROME
     Dosage: UNK
     Route: 048
     Dates: start: 20040301, end: 20100301
  2. OCELLA [Suspect]
     Indication: PREMENSTRUAL SYNDROME
     Dosage: UNK
     Route: 048
     Dates: start: 20040301, end: 20100301
  3. OCELLA [Suspect]
     Indication: POLYCYSTIC OVARIES
  4. ASCORBIC ACID [Concomitant]
  5. YAZ [Suspect]
     Indication: POLYCYSTIC OVARIES
  6. NSAID'S [Concomitant]
  7. YAZ [Suspect]
     Indication: PREMENSTRUAL SYNDROME
     Dosage: UNK
     Route: 048
     Dates: start: 20040301, end: 20100301
  8. YASMIN [Suspect]
     Indication: POLYCYSTIC OVARIES

REACTIONS (4)
  - GALLBLADDER DISORDER [None]
  - CHOLECYSTITIS CHRONIC [None]
  - CHOLELITHIASIS [None]
  - ABDOMINAL PAIN [None]
